FAERS Safety Report 8340458-9 (Version None)
Quarter: 2012Q2

REPORT INFORMATION
  Report Type: 
  Country: None (occurrence: None)
  Receive Date: 20120507
  Receipt Date: 20120426
  Transmission Date: 20120825
  Serious: No
  Sender: FDA-Public Use
  Company Number: US-BAYER-2012-043805

PATIENT

DRUGS (3)
  1. NAPROXEN SODIUM [Suspect]
     Dosage: 4 U, UNK
     Route: 048
  2. TYLENOL W/ CODEINE NO. 3 [Concomitant]
  3. IBUPROFEN (ADVIL) [Concomitant]

REACTIONS (2)
  - NO ADVERSE EVENT [None]
  - FEELING ABNORMAL [None]
